FAERS Safety Report 6421842-7 (Version None)
Quarter: 2009Q4

REPORT INFORMATION
  Report Type: 
  Country: None (occurrence: None)
  Receive Date: 20091029
  Receipt Date: 20091029
  Transmission Date: 20100525
  Serious: Yes (Disabling)
  Sender: FDA-Public Use
  Company Number: None

PATIENT
  Age: 60 Year
  Sex: Female

DRUGS (2)
  1. METFORMIN HCL [Suspect]
     Indication: PANCREATITIS
  2. EXENATIDE [Suspect]
     Dosage: 5MCG BID

REACTIONS (1)
  - PANCREATITIS ACUTE [None]
